FAERS Safety Report 8883151 (Version 2)
Quarter: 2013Q1

REPORT INFORMATION
  Report Type: Spontaneous
  Country: BR (occurrence: BR)
  Receive Date: 20121102
  Receipt Date: 20130131
  Transmission Date: 20140127
  Serious: Yes (Other)
  Sender: FDA-Public Use
  Company Number: PHHY2012BR099428

PATIENT
  Age: 0 Year
  Sex: Male

DRUGS (3)
  1. DIOVAN [Suspect]
     Dosage: MATERNAL DOSE OF 1 DF, DAILY
     Route: 064
  2. ALDOMET [Suspect]
     Indication: HYPERTENSION
     Dosage: MATERNAL DOSE 2 DF, DAILY
     Route: 064
  3. ALDOMET [Suspect]
     Dosage: MATERNAL DOSE 500MG EVERY 8 HOURS
     Route: 064

REACTIONS (3)
  - Premature baby [Unknown]
  - Low birth weight baby [Unknown]
  - Foetal exposure during pregnancy [Unknown]
